FAERS Safety Report 5801812-X (Version None)
Quarter: 2008Q3

REPORT INFORMATION
  Report Type: 
  Country: None (occurrence: None)
  Receive Date: 20080707
  Receipt Date: 20080701
  Transmission Date: 20090109
  Serious: Yes (Other)
  Sender: FDA-Public Use
  Company Number: US-MERCK-0807USA00381

PATIENT
  Sex: Female

DRUGS (4)
  1. FOSAMAX [Suspect]
     Route: 048
  2. ZOLOFT [Suspect]
     Route: 065
  3. IMITREX [Suspect]
     Route: 065
  4. VALTREX [Suspect]
     Route: 065

REACTIONS (2)
  - PAIN [None]
  - SUICIDAL IDEATION [None]
